FAERS Safety Report 10585529 (Version 2)
Quarter: 2014Q4

REPORT INFORMATION
  Report Type: Other
  Country: GB (occurrence: GB)
  Receive Date: 20141114
  Receipt Date: 20141204
  Transmission Date: 20150529
  Serious: Yes (Other)
  Sender: FDA-Public Use
  Company Number: GB-MYLANLABS-2014M1009758

PATIENT

DRUGS (1)
  1. SIMVASTATIN. [Suspect]
     Active Substance: SIMVASTATIN
     Indication: BLOOD CHOLESTEROL INCREASED
     Dosage: DOSE 40, UNIT UNSPECIFIED
     Route: 048

REACTIONS (5)
  - Muscular weakness [Unknown]
  - Impaired work ability [Unknown]
  - Quality of life decreased [Unknown]
  - Social problem [Unknown]
  - Myalgia [Unknown]
